FAERS Safety Report 16709359 (Version 1)
Quarter: 2019Q3

REPORT INFORMATION
  Report Type: Spontaneous
  Country: BE (occurrence: BE)
  Receive Date: 20190816
  Receipt Date: 20190816
  Transmission Date: 20191004
  Serious: Yes (Hospitalization, Other)
  Sender: FDA-Public Use
  Company Number: BE-ACCORD-151317

PATIENT
  Age: 58 Year
  Sex: Male
  Weight: 110 kg

DRUGS (20)
  1. IMODIUM [Concomitant]
     Active Substance: LOPERAMIDE HYDROCHLORIDE
     Indication: DIARRHOEA
     Dosage: 2 MG, PRN
     Route: 048
     Dates: start: 20190518
  2. ZYLORIC [Concomitant]
     Active Substance: ALLOPURINOL
     Indication: GOUT
     Dosage: 300 MG, DAILY
     Route: 048
  3. UNI DIAMICRON [Concomitant]
     Active Substance: GLICLAZIDE
     Indication: DIABETES MELLITUS
     Dosage: UNK
     Route: 048
  4. RAMIPRIL. [Concomitant]
     Active Substance: RAMIPRIL
     Dosage: UNK UNK, UNK
     Route: 048
     Dates: start: 20190525, end: 20190527
  5. NYSTATIN. [Concomitant]
     Active Substance: NYSTATIN
     Indication: PROPHYLAXIS
     Dosage: UNK
     Route: 048
     Dates: start: 20190508
  6. PANTOPRAZOLE [Concomitant]
     Active Substance: PANTOPRAZOLE
     Dosage: 20 MG, DAILY
     Route: 048
  7. FRAXIPARINE [Concomitant]
     Active Substance: NADROPARIN CALCIUM
     Dosage: 0.8 ML, BID
     Route: 058
  8. LEUCOVORINE [Concomitant]
     Active Substance: LEUCOVORIN
     Indication: PANCREATIC CARCINOMA METASTATIC
     Dosage: 400 MG/M2 ON DAY 1
     Route: 058
     Dates: start: 20190508
  9. PERIO AID [Concomitant]
     Indication: PROPHYLAXIS
     Dosage: UNK
     Route: 065
     Dates: start: 20190508
  10. FLUOROURACIL. [Suspect]
     Active Substance: FLUOROURACIL
     Indication: PRODUCT USED FOR UNKNOWN INDICATION
     Dosage: 2400 MG/M2, CYCLIC (46 HOUR IV INFUSION: EVERY 14 DAYS)
     Route: 041
     Dates: start: 20190508
  11. OXALIPLATIN. [Suspect]
     Active Substance: OXALIPLATIN
     Indication: PANCREATIC CARCINOMA METASTATIC
     Dosage: 85 MG/M2, QCY
     Route: 042
     Dates: start: 20190508, end: 20190508
  12. ALOXI [Concomitant]
     Active Substance: PALONOSETRON HYDROCHLORIDE
     Indication: PROPHYLAXIS
     Dosage: 250 UG, OTHER EVERY 2 WEEKS
     Route: 065
     Dates: start: 20190508
  13. FLUOROURACIL. [Concomitant]
     Active Substance: FLUOROURACIL
     Dosage: 400 MG/M2 ON DAY 1
     Route: 040
     Dates: start: 20190524
  14. FLAMMAZINE [Concomitant]
     Active Substance: SILVER SULFADIAZINE
     Dosage: UNK
     Route: 065
  15. LEUCOVORIN. [Suspect]
     Active Substance: LEUCOVORIN
     Indication: PANCREATIC CARCINOMA METASTATIC
     Dosage: 400 MG/M2, CYCLIC ON DAY 1, EVERY 14 DAYS
     Route: 042
     Dates: start: 20190508
  16. FLUCONAZOLE. [Concomitant]
     Active Substance: FLUCONAZOLE
     Indication: INTERTRIGO
     Dosage: 200 MG, DAILY
     Route: 048
     Dates: start: 20190524
  17. METFORMAX [Concomitant]
     Active Substance: METFORMIN HYDROCHLORIDE
     Indication: DIABETES MELLITUS
     Dosage: 850 MG, TID
     Route: 048
  18. BISOPROLOL [Concomitant]
     Active Substance: BISOPROLOL
     Indication: ATRIAL FIBRILLATION
     Route: 065
  19. DAFALGAN [Concomitant]
     Active Substance: ACETAMINOPHEN
     Dosage: 1 G, PRN
     Route: 048
  20. SOLU-MEDROL [Concomitant]
     Active Substance: METHYLPREDNISOLONE SODIUM SUCCINATE
     Indication: PROPHYLAXIS
     Dosage: 40 MG, OTHER EVERY 2 WEEKS
     Route: 065
     Dates: start: 20190508

REACTIONS (2)
  - Device related infection [Unknown]
  - Pyrexia [Recovered/Resolved]

NARRATIVE: CASE EVENT DATE: 20190524
